FAERS Safety Report 6211062-3 (Version None)
Quarter: 2009Q2

REPORT INFORMATION
  Report Type: 
  Country: None (occurrence: None)
  Receive Date: 20090528
  Receipt Date: 20090521
  Transmission Date: 20091009
  Serious: Yes (Hospitalization)
  Sender: FDA-Public Use
  Company Number: CIP09000865

PATIENT
  Age: 56 Year
  Sex: Female

DRUGS (9)
  1. ACTONEL [Suspect]
     Dosage: 150 MG 1 DOSE ONLY, ORAL
     Route: 048
     Dates: start: 20090305, end: 20090305
  2. FLEXERIL [Concomitant]
  3. HYDROCODONE (HYDROCODONE) [Concomitant]
  4. SYNTHROID [Concomitant]
  5. EVISTA [Concomitant]
  6. CALCIUM+D (CALCIUM, ERGOCALCIFEROL) [Concomitant]
  7. VITAMIN B12 [Concomitant]
  8. PREMARIN [Concomitant]
  9. AMBIEN CR [Concomitant]

REACTIONS (9)
  - ARTHRALGIA [None]
  - BURSITIS [None]
  - CHEST PAIN [None]
  - GAIT DISTURBANCE [None]
  - INFLUENZA [None]
  - NAUSEA [None]
  - PAIN [None]
  - PARAESTHESIA ORAL [None]
  - VENTRICULAR EXTRASYSTOLES [None]
